FAERS Safety Report 12825324 (Version 1)
Quarter: 2016Q4

REPORT INFORMATION
  Report Type: Spontaneous
  Country: US (occurrence: US)
  Receive Date: 20161007
  Receipt Date: 20161007
  Transmission Date: 20170207
  Serious: No
  Sender: FDA-Public Use
  Company Number: US-UNICHEM LABORATORIES LIMITED-UCM201602-000030

PATIENT
  Sex: Female

DRUGS (1)
  1. CLONIDINE HCL [Suspect]
     Active Substance: CLONIDINE HYDROCHLORIDE
     Route: 048

REACTIONS (3)
  - Malaise [Unknown]
  - Headache [Unknown]
  - Drug ineffective [Unknown]
